FAERS Safety Report 9205817 (Version 1)
Quarter: 2013Q2

REPORT INFORMATION
  Report Type: Spontaneous
  Country: US (occurrence: None)
  Receive Date: 20130401
  Receipt Date: 20130401
  Transmission Date: 20140414
  Serious: Yes (Other)
  Sender: FDA-Public Use
  Company Number: 1302-221

PATIENT
  Age: 85 Year
  Sex: Female

DRUGS (1)
  1. EYLEA (AFLIBERCEPT)(INJECTION)(AFLIBERCEPT) [Suspect]
     Dosage: INTRAVITREAL

REACTIONS (2)
  - Endophthalmitis [None]
  - Eye operation [None]
